FAERS Safety Report 19496626 (Version 1)
Quarter: 2021Q3

REPORT INFORMATION
  Report Type: Spontaneous
  Country: US (occurrence: US)
  Receive Date: 20210703
  Receipt Date: 20210703
  Transmission Date: 20211014
  Serious: Yes (Other)
  Sender: FDA-Public Use
  Company Number: None

PATIENT
  Age: 61 Year
  Sex: Female
  Weight: 59.4 kg

DRUGS (10)
  1. CALCIUM CITRATE [Concomitant]
     Active Substance: CALCIUM CITRATE
  2. MULTIPLE VITAMIN [Concomitant]
     Active Substance: VITAMINS
  3. IMVEXY [Concomitant]
  4. PROLIA [Suspect]
     Active Substance: DENOSUMAB
     Indication: OSTEOPOROSIS
     Dosage: ?          QUANTITY:1 INJECTION(S);OTHER FREQUENCY:EVERY 6 MONTHS;?
     Route: 058
     Dates: start: 20200423, end: 20201023
  5. VITAMIN B12 [Concomitant]
     Active Substance: CYANOCOBALAMIN
  6. ASPIRIN. [Concomitant]
     Active Substance: ASPIRIN
  7. ACETAMINOPHEN. [Concomitant]
     Active Substance: ACETAMINOPHEN
  8. XIIDRA [Concomitant]
     Active Substance: LIFITEGRAST
  9. CLOBETASOL [Concomitant]
     Active Substance: CLOBETASOL
  10. VITAMIN D3 [Concomitant]
     Active Substance: CHOLECALCIFEROL

REACTIONS (2)
  - Palatal disorder [None]
  - Osteonecrosis [None]

NARRATIVE: CASE EVENT DATE: 20210215
